FAERS Safety Report 23738713 (Version 1)
Quarter: 2024Q2

REPORT INFORMATION
  Report Type: Spontaneous
  Country: CZ (occurrence: CZ)
  Receive Date: 20240413
  Receipt Date: 20240413
  Transmission Date: 20240716
  Serious: Yes (Death)
  Sender: FDA-Public Use
  Company Number: None

PATIENT
  Age: 77 Year
  Sex: Female

DRUGS (5)
  1. SKYRIZI [Suspect]
     Active Substance: RISANKIZUMAB-RZAA
     Indication: Psoriasis
     Dosage: FIRST TWO DOSES IN A FOUR-WEEK INTERVAL, THEN EVERY TWELVE WEEKS
     Route: 058
     Dates: start: 202105, end: 20231208
  2. SKYRIZI [Suspect]
     Active Substance: RISANKIZUMAB-RZAA
     Dosage: FIRST TWO DOSES IN A FOUR-WEEK INTERVAL, THEN EVERY TWELVE WEEKS.??FREQUENCY ONCE.
     Route: 058
     Dates: start: 20210120, end: 20210120
  3. SKYRIZI [Suspect]
     Active Substance: RISANKIZUMAB-RZAA
     Dosage: FIRST TWO DOSES IN A FOUR-WEEK INTERVAL, THEN EVERY TWELVE WEEKS.??FREQUENCY ONCE.
     Route: 058
     Dates: start: 202102, end: 202102
  4. ROSUVASTATIN [Concomitant]
     Active Substance: ROSUVASTATIN
     Indication: Product used for unknown indication
  5. METFORMIN [Concomitant]
     Active Substance: METFORMIN HYDROCHLORIDE
     Indication: Product used for unknown indication

REACTIONS (3)
  - Cerebrovascular accident [Fatal]
  - Immobile [Unknown]
  - Incontinence [Unknown]

NARRATIVE: CASE EVENT DATE: 20230705
